FAERS Safety Report 9245709 (Version 1)
Quarter: 2013Q2

REPORT INFORMATION
  Report Type: Spontaneous
  Country: US (occurrence: US)
  Receive Date: 20130422
  Receipt Date: 20130422
  Transmission Date: 20140414
  Serious: No
  Sender: FDA-Public Use
  Company Number: US-ASTELLAS-2013US002859

PATIENT
  Age: 77 Year
  Sex: Female
  Weight: 60 kg

DRUGS (1)
  1. LEXISCAN [Suspect]
     Indication: SCAN MYOCARDIAL PERFUSION
     Dosage: UNK
     Route: 042
     Dates: start: 20130225, end: 20130225

REACTIONS (7)
  - Muscle spasms [Recovered/Resolved]
  - Dysstasia [Recovered/Resolved]
  - Pain [Recovered/Resolved]
  - Asthenia [Recovered/Resolved]
  - Supraventricular extrasystoles [Recovered/Resolved]
  - Myalgia [Recovered/Resolved]
  - Back pain [Recovered/Resolved]
